FAERS Safety Report 9550063 (Version 4)
Quarter: 2014Q2

REPORT INFORMATION
  Report Type: Report from Study
  Country: JP (occurrence: JP)
  Receive Date: 20130924
  Receipt Date: 20140516
  Transmission Date: 20141212
  Serious: Yes (Other)
  Sender: FDA-Public Use
  Company Number: JP-VERTEX PHARMACEUTICALS INC-AE-2012-008224

PATIENT
  Age: 53 Year
  Sex: Male

DRUGS (13)
  1. VX-950 (TELAPREVIR) [Suspect]
     Indication: CHRONIC HEPATITIS C
     Dosage: 2250 MG, QD
     Route: 048
     Dates: start: 20120327, end: 20120618
  2. RIBAVIRIN [Suspect]
     Indication: CHRONIC HEPATITIS C
     Dosage: 1000 MG, QD
     Route: 048
     Dates: start: 20120327, end: 20120910
  3. PEGINTRON [Suspect]
     Indication: CHRONIC HEPATITIS C
     Dosage: 1.33 ?G/KG, QW
     Route: 058
     Dates: start: 20120327, end: 20120417
  4. PEGINTRON [Suspect]
     Dosage: 1.09 ?G/KG, QW
     Route: 058
     Dates: start: 20120417, end: 20120424
  5. PEGINTRON [Suspect]
     Dosage: 0.7 ?G/KG, QW
     Route: 058
     Dates: start: 20120501
  6. PEGINTRON [Suspect]
     Dosage: 0.7 ?G/KG, QW
     Route: 058
     Dates: start: 20120515, end: 20120515
  7. PEGINTRON [Suspect]
     Dosage: 1.0 ?G/KG, QW
     Route: 058
     Dates: start: 20120522
  8. PEGINTRON [Suspect]
     Dosage: 0.9 ?G/KG, QW
     Route: 058
     Dates: start: 20120626, end: 20120717
  9. PEGINTRON [Suspect]
     Dosage: 1.2 ?G/KG, QW
     Route: 058
     Dates: start: 20120724, end: 20120904
  10. GLUCOBAY [Concomitant]
     Dosage: 300 MG, QD
     Route: 048
     Dates: start: 20120327
  11. LOXONIN [Concomitant]
     Dosage: 60 MG/DAY, PRN
     Route: 048
     Dates: start: 20120327
  12. MUCOSTA [Concomitant]
     Dosage: 100 MG/DAY, PRN
     Route: 048
     Dates: start: 20120327
  13. MOHRUS L [Concomitant]
     Dosage: UNK, PRN
     Route: 061
     Dates: start: 20120328

REACTIONS (1)
  - Neutrophil count decreased [Recovered/Resolved]
